FAERS Safety Report 5385484-7 (Version None)
Quarter: 2007Q3

REPORT INFORMATION
  Report Type: 
  Country: None (occurrence: None)
  Receive Date: 20070712
  Receipt Date: 20070704
  Transmission Date: 20080115
  Serious: Yes (Death)
  Sender: FDA-Public Use
  Company Number: JP-ASTRAZENECA-2007SE03938

PATIENT
  Age: 27596 Day
  Sex: Male

DRUGS (3)
  1. BLOPRESS [Suspect]
     Indication: HYPERTENSION
     Route: 050
     Dates: start: 20051009, end: 20051025
  2. AMLODIN [Concomitant]
     Route: 048
     Dates: start: 19950101
  3. BUFFERIN [Concomitant]
     Route: 048
     Dates: start: 19950101

REACTIONS (2)
  - PNEUMONIA ASPIRATION [None]
  - SEPSIS [None]
